FAERS Safety Report 18168140 (Version 2)
Quarter: 2021Q4

REPORT INFORMATION
  Report Type: Spontaneous
  Country: US (occurrence: US)
  Receive Date: 20200818
  Receipt Date: 20211004
  Transmission Date: 20220303
  Serious: No
  Sender: FDA-Public Use
  Company Number: US-OTSUKA-2020_012503

PATIENT
  Sex: Male

DRUGS (1)
  1. ABILIFY MAINTENA [Suspect]
     Active Substance: ARIPIPRAZOLE
     Indication: Schizophrenia
     Dosage: UNK UNK, QM (FOR 2 TO 3 YEARS)
     Route: 065
     Dates: end: 202002

REACTIONS (8)
  - Abnormal behaviour [Not Recovered/Not Resolved]
  - Obsessive-compulsive disorder [Unknown]
  - Change in sustained attention [Unknown]
  - Withdrawal syndrome [Not Recovered/Not Resolved]
  - Therapy interrupted [Unknown]
  - Insurance issue [Unknown]
  - Inability to afford medication [Unknown]
  - Drug monitoring procedure incorrectly performed [Unknown]
